FAERS Safety Report 11801993 (Version 2)
Quarter: 2015Q4

REPORT INFORMATION
  Report Type: Spontaneous
  Country: JP (occurrence: JP)
  Receive Date: 20151204
  Receipt Date: 20151230
  Transmission Date: 20160305
  Serious: Yes (Hospitalization)
  Sender: FDA-Public Use
  Company Number: JP-MYLANLABS-2015M1041790

PATIENT

DRUGS (3)
  1. ETOPOSIDE. [Suspect]
     Active Substance: ETOPOSIDE
     Indication: TERATOMA
     Route: 041
  2. IFOMIDE [Suspect]
     Active Substance: IFOSFAMIDE
     Indication: TERATOMA
     Route: 041
  3. CARBOPLATIN MYLAN [Suspect]
     Active Substance: CARBOPLATIN
     Route: 041

REACTIONS (2)
  - Teratoma [Unknown]
  - Neoplasm progression [Unknown]
